FAERS Safety Report 13762598 (Version 2)
Quarter: 2020Q3

REPORT INFORMATION
  Report Type: Spontaneous
  Country: US (occurrence: US)
  Receive Date: 20170718
  Receipt Date: 20200717
  Transmission Date: 20201102
  Serious: Yes (Other)
  Sender: FDA-Public Use
  Company Number: US-PFIZER INC-2017310927

PATIENT
  Sex: Female

DRUGS (1)
  1. GABAPENTIN. [Suspect]
     Active Substance: GABAPENTIN
     Dosage: UNK

REACTIONS (7)
  - Feeling abnormal [Unknown]
  - Thinking abnormal [Unknown]
  - Drug ineffective [Unknown]
  - Sjogren^s syndrome [Unknown]
  - Memory impairment [Unknown]
  - Communication disorder [Unknown]
  - Neuropathy peripheral [Unknown]
